FAERS Safety Report 5259435-X (Version None)
Quarter: 2007Q1

REPORT INFORMATION
  Report Type: 
  Country: None (occurrence: None)
  Receive Date: 20070305
  Receipt Date: 20070220
  Transmission Date: 20070707
  Serious: Yes (Hospitalization)
  Sender: FDA-Public Use
  Company Number: 232459K06USA

PATIENT
  Age: 44 Year
  Sex: Female

DRUGS (5)
  1. REBIF [Suspect]
     Indication: MULTIPLE SCLEROSIS
     Dosage: 44 MCG, 2 IN 1 WEEKS, SUBCUTANEOUS
     Route: 058
     Dates: start: 20040323, end: 20060701
  2. FUROSEMIDE (FUROSEMIDE /00032601/) [Concomitant]
  3. QUINAPRIL HCL [Concomitant]
  4. POTASSIUM (POTASSIUM /00031401/) [Concomitant]
  5. TOPROL-XL [Concomitant]

REACTIONS (1)
  - RENAL FAILURE [None]
